FAERS Safety Report 6468982-4 (Version None)
Quarter: 2009Q4

REPORT INFORMATION
  Report Type: 
  Country: None (occurrence: None)
  Receive Date: 20091203
  Receipt Date: 20091120
  Transmission Date: 20100525
  Serious: Yes (Hospitalization)
  Sender: FDA-Public Use
  Company Number: PHHY2009AU45435

PATIENT
  Sex: Female
  Weight: 53 kg

DRUGS (5)
  1. ACLASTA [Suspect]
     Indication: OSTEOPOROSIS
     Dosage: UNK
     Route: 042
     Dates: start: 20090813
  2. METHOTREXATE [Concomitant]
     Indication: RHEUMATOID ARTHRITIS
     Dosage: 10 MG, QW
     Route: 048
     Dates: start: 20070719
  3. PREDNISOLONE [Concomitant]
     Dosage: 3 MG DAILY
     Route: 048
     Dates: start: 20070101
  4. HUMIRA [Concomitant]
     Dosage: FORTNIGHTLY
     Route: 058
     Dates: start: 20061101
  5. METFORMIN HCL [Concomitant]
     Indication: DIABETES MELLITUS
     Dosage: 500 MG
     Route: 048
     Dates: start: 20060101

REACTIONS (7)
  - ARTHRALGIA [None]
  - ARTHRITIS BACTERIAL [None]
  - ERYTHEMA [None]
  - OEDEMA PERIPHERAL [None]
  - PAIN IN EXTREMITY [None]
  - PYREXIA [None]
  - SEPSIS [None]
